FAERS Safety Report 6768108-3 (Version None)
Quarter: 2010Q2

REPORT INFORMATION
  Report Type: 
  Country: None (occurrence: None)
  Receive Date: 20100614
  Receipt Date: 20100608
  Transmission Date: 20101027
  Serious: Yes (Hospitalization)
  Sender: FDA-Public Use
  Company Number: GB-PFIZER INC-2006105537

PATIENT
  Age: 73 Year
  Sex: Female

DRUGS (4)
  1. SUNITINIB MALATE [Suspect]
     Indication: RENAL CELL CARCINOMA
     Dosage: 50 MG, 1X/DAY
     Route: 048
     Dates: start: 20060814, end: 20060827
  2. TEMAZEPAM [Concomitant]
     Route: 048
  3. LAXOBERAL [Concomitant]
     Route: 048
  4. FERROUS SULFATE TAB [Concomitant]
     Route: 048
     Dates: end: 20060829

REACTIONS (2)
  - SYNCOPE [None]
  - VOMITING [None]
